FAERS Safety Report 10905939 (Version 1)
Quarter: 2015Q1

REPORT INFORMATION
  Report Type: Spontaneous
  Country: US (occurrence: None)
  Receive Date: 20150212
  Receipt Date: 20150212
  Transmission Date: 20150721
  Serious: Yes (Death)
  Sender: FDA-Public Use
  Company Number: LIT-009-15-US

PATIENT
  Age: 6 Year
  Sex: Female

DRUGS (1)
  1. HUMAN NORMAL IMMUNOGLOBULIN (IV) (TRADENAME UNKNOWN) [Suspect]
     Active Substance: HUMAN IMMUNOGLOBULIN G
     Indication: PROPHYLAXIS AGAINST TRANSPLANT REJECTION
     Dosage: 2000 MG/KG (1X 2 / MONT
     Route: 042
     Dates: start: 201104, end: 201104

REACTIONS (8)
  - Myocardial ischaemia [None]
  - Pulse absent [None]
  - Unresponsive to stimuli [None]
  - Vascular graft complication [None]
  - Coronary artery disease [None]
  - Mitral valve incompetence [None]
  - Heart sounds abnormal [None]
  - Blood viscosity increased [None]

NARRATIVE: CASE EVENT DATE: 201104
